FAERS Safety Report 8943144 (Version 1)
Quarter: 2012Q4

REPORT INFORMATION
  Report Type: 
  Country: MX (occurrence: MX)
  Receive Date: 20121204
  Receipt Date: 20121204
  Transmission Date: 20130627
  Serious: Yes (Other)
  Sender: FDA-Public Use
  Company Number: PHHY2012MX111202

PATIENT
  Age: 57 Year
  Sex: Female

DRUGS (2)
  1. CO-DIOVAN [Suspect]
     Indication: HYPERTENSION
     Dosage: 1 DF (160/12.5mg), daily
     Route: 048
     Dates: start: 20070101
  2. CO-DIOVAN [Suspect]
     Dosage: 2 DF (160/12.5 mg), UNK

REACTIONS (1)
  - Arrhythmia [Recovered/Resolved]
